FAERS Safety Report 23824494 (Version 1)
Quarter: 2024Q2

REPORT INFORMATION
  Report Type: Spontaneous
  Country: US (occurrence: US)
  Receive Date: 20240507
  Receipt Date: 20240507
  Transmission Date: 20240716
  Serious: No
  Sender: FDA-Public Use
  Company Number: US-HALEON-2172703

PATIENT

DRUGS (2)
  1. NICODERM CQ [Suspect]
     Active Substance: NICOTINE
     Indication: Drug therapy
     Dosage: UNK
     Dates: start: 2024
  2. NICORETTE [Suspect]
     Active Substance: NICOTINE
     Indication: Drug therapy
     Dosage: UNK
     Dates: start: 2024

REACTIONS (1)
  - Wrong technique in product usage process [Unknown]
